FAERS Safety Report 9050350 (Version 6)
Quarter: 2014Q1

REPORT INFORMATION
  Report Type: Report from Study
  Country: GR (occurrence: GR)
  Receive Date: 20130205
  Receipt Date: 20140213
  Transmission Date: 20141002
  Serious: Yes (Hospitalization, Other)
  Sender: FDA-Public Use
  Company Number: GR-JNJFOC-20130116789

PATIENT
  Age: 52 Year
  Sex: Female

DRUGS (4)
  1. REMICADE [Suspect]
     Indication: PSORIATIC ARTHROPATHY
     Dosage: APPROXIMATELY RECEIVED A TOTAL OF 48 INFUSIONS.
     Route: 042
     Dates: start: 20060703, end: 20121122
  2. REMICADE [Suspect]
     Indication: PSORIASIS
     Dosage: APPROXIMATELY RECEIVED A TOTAL OF 48 INFUSIONS.
     Route: 042
     Dates: start: 20060703, end: 20121122
  3. METHOTREXATE [Suspect]
     Indication: PRODUCT USED FOR UNKNOWN INDICATION
     Route: 065
     Dates: start: 20060930, end: 200701
  4. METHOTREXATE [Suspect]
     Indication: PRODUCT USED FOR UNKNOWN INDICATION
     Route: 065
     Dates: start: 20111206, end: 20121122

REACTIONS (1)
  - Hodgkin^s disease mixed cellularity stage III [Recovered/Resolved]
